FAERS Safety Report 8845937 (Version 1)
Quarter: 2012Q4

REPORT INFORMATION
  Report Type: Report from Study
  Country: IE (occurrence: IE)
  Receive Date: 20121017
  Receipt Date: 20121017
  Transmission Date: 20130627
  Serious: Yes (Hospitalization, Other)
  Sender: FDA-Public Use
  Company Number: IE-ROCHE-689569

PATIENT
  Age: 58 Year
  Sex: Female
  Weight: 87.6 kg

DRUGS (3)
  1. BEVACIZUMAB [Suspect]
     Indication: BREAST CANCER
     Dosage: LAST DOSE PRIOR TO SAE ON 01 MARCH 2010
     Route: 042
  2. DOCETAXEL [Suspect]
     Indication: BREAST CANCER
     Dosage: last dsoe prior to SAE: 01/mar/2010
     Route: 042
     Dates: start: 20100118
  3. CYCLOPHOSPHAMIDE [Suspect]
     Indication: BREAST CANCER
     Dosage: last dsoe prior to SAE: 01/mar/2010
     Route: 042
     Dates: start: 20100118

REACTIONS (5)
  - Pyrexia [Recovered/Resolved]
  - Rash [Recovered/Resolved]
  - Neuropathy peripheral [Recovered/Resolved]
  - Lower respiratory tract infection [Recovered/Resolved]
  - Chest pain [Recovered/Resolved]
